FAERS Safety Report 13198252 (Version 1)
Quarter: 2017Q1

REPORT INFORMATION
  Report Type: Spontaneous
  Country: US (occurrence: US)
  Receive Date: 20170208
  Receipt Date: 20170208
  Transmission Date: 20170428
  Serious: No
  Sender: FDA-Public Use
  Company Number: US-AMGEN-USASP2017003498

PATIENT
  Age: 76 Year
  Sex: Male

DRUGS (3)
  1. CISPLATIN. [Concomitant]
     Active Substance: CISPLATIN
     Indication: BLADDER CANCER
     Dosage: UNK (ON DAY 1)
  2. NEULASTA [Suspect]
     Active Substance: PEGFILGRASTIM
     Indication: PRODUCT USED FOR UNKNOWN INDICATION
     Dosage: UNK
     Route: 065
     Dates: start: 20161215
  3. GEMZAR [Concomitant]
     Active Substance: GEMCITABINE HYDROCHLORIDE
     Indication: BLADDER CANCER
     Dosage: UNK, (ON DAY 1 AND DAY 8)

REACTIONS (2)
  - Wrong technique in product usage process [Unknown]
  - Extra dose administered [Unknown]

NARRATIVE: CASE EVENT DATE: 201701
